FAERS Safety Report 10181728 (Version 1)
Quarter: 2014Q2

REPORT INFORMATION
  Report Type: Spontaneous
  Country: US (occurrence: US)
  Receive Date: 20140519
  Receipt Date: 20140519
  Transmission Date: 20141212
  Serious: No
  Sender: FDA-Public Use
  Company Number: US-BANPHARM-20131589

PATIENT
  Age: 36 Year
  Sex: Female
  Weight: 106.59 kg

DRUGS (2)
  1. IBUPROFEN CAPSULES 200 MG [Suspect]
     Indication: ARTHRALGIA
     Dosage: 3 DF, PRN,
     Route: 048
  2. HUMIRA INJECTION [Concomitant]
     Dosage: EVERY 2 WEEKS,

REACTIONS (2)
  - Drug effect decreased [Unknown]
  - Expired product administered [Unknown]
